FAERS Safety Report 15898449 (Version 2)
Quarter: 2019Q1

REPORT INFORMATION
  Report Type: Report from Study
  Country: DE (occurrence: DE)
  Receive Date: 20190201
  Receipt Date: 20190201
  Transmission Date: 20190417
  Serious: Yes (Hospitalization, Other)
  Sender: FDA-Public Use
  Company Number: DE-TEVA-2019-DE-1005442

PATIENT
  Age: 39 Year
  Sex: Male
  Weight: 69 kg

DRUGS (14)
  1. PHENYTOIN. [Suspect]
     Active Substance: PHENYTOIN
     Indication: EPILEPSY
     Route: 048
     Dates: start: 20011025
  2. ORFIRIL ^DESITIN^ [Suspect]
     Active Substance: VALPROATE SODIUM
     Dosage: 300 MG, QD
     Route: 048
     Dates: start: 1996, end: 1996
  3. SAGE. [Suspect]
     Active Substance: SAGE
     Indication: NASOPHARYNGITIS
     Dates: start: 20011201
  4. PARACETAMOL ^STADA^ [Suspect]
     Active Substance: ACETAMINOPHEN
     Indication: NASOPHARYNGITIS
     Route: 048
     Dates: start: 20011128
  5. ORFIRIL ^DESITIN^ [Suspect]
     Active Substance: VALPROATE SODIUM
     Dosage: 1000MG/DAY
     Route: 048
     Dates: start: 1996
  6. LEPTILAN [Suspect]
     Active Substance: VALPROATE SODIUM
     Indication: EPILEPSY
     Dosage: 300 MG, QD
     Route: 048
     Dates: start: 20011113
  7. BALDRIAN [Suspect]
     Active Substance: VALERIAN
     Route: 048
  8. RANITIDINE. [Suspect]
     Active Substance: RANITIDINE
     Dosage: 300MG/DAY
     Route: 048
  9. CARBAMAZEPINE. [Suspect]
     Active Substance: CARBAMAZEPINE
     Indication: EPILEPSY
     Route: 048
     Dates: start: 1978
  10. KAMILLOSAN KONZENTRAT LOESUNG [Suspect]
     Active Substance: HERBALS\HOMEOPATHICS\MATRICARIA RECUTITA
     Dosage: UNK, ONCE/SINGLE
     Dates: start: 20011201, end: 20011201
  11. TAXOFIT [Suspect]
     Active Substance: MINERALS\VITAMINS
     Indication: FATIGUE
     Route: 048
     Dates: start: 20011127
  12. METOCLOPRAMIDE HYDROCHLORIDE. [Suspect]
     Active Substance: METOCLOPRAMIDE HYDROCHLORIDE
     Indication: NAUSEA
     Dosage: 20 DRP, TID
     Route: 048
     Dates: start: 20011128
  13. ERGENYL CHRONO [Suspect]
     Active Substance: VALPROIC ACID
     Indication: EPILEPSY
     Dosage: 1000 MG, BID
     Route: 048
     Dates: start: 20011113
  14. VALERIAN EXTRACT [Suspect]
     Active Substance: VALERIAN EXTRACT
     Indication: RESTLESSNESS
     Dates: start: 20011201

REACTIONS (17)
  - Epilepsy [Unknown]
  - Rash macular [Recovering/Resolving]
  - Nasopharyngitis [Unknown]
  - Pruritus [Recovering/Resolving]
  - Swelling face [Recovering/Resolving]
  - Nausea [Unknown]
  - Gamma-glutamyltransferase increased [Unknown]
  - Restlessness [Unknown]
  - Erythema [Recovering/Resolving]
  - Dysphagia [Unknown]
  - Pyrexia [Recovering/Resolving]
  - Liver function test abnormal [Unknown]
  - Mucosal erosion [Recovering/Resolving]
  - Fatigue [Unknown]
  - Aspartate aminotransferase increased [Unknown]
  - Stevens-Johnson syndrome [Recovering/Resolving]
  - Alanine aminotransferase increased [Unknown]

NARRATIVE: CASE EVENT DATE: 20011127
